FAERS Safety Report 24453403 (Version 2)
Quarter: 2024Q4

REPORT INFORMATION
  Report Type: Spontaneous
  Country: NL (occurrence: NL)
  Receive Date: 20241017
  Receipt Date: 20241018
  Transmission Date: 20250114
  Serious: No
  Sender: ROCHE
  Company Number: NL-ROCHE-3384938

PATIENT

DRUGS (7)
  1. RITUXIMAB [Interacting]
     Active Substance: RITUXIMAB
     Indication: Product used for unknown indication
     Route: 064
  2. VINCRISTINE [Interacting]
     Active Substance: VINCRISTINE
     Indication: Product used for unknown indication
     Route: 064
  3. INFLIXIMAB [Interacting]
     Active Substance: INFLIXIMAB
     Indication: Product used for unknown indication
     Dosage: 0.5 MCG/ML
     Route: 064
  4. PNEUMOCOCCAL VACCINE POLYVALENT [Interacting]
     Active Substance: PNEUMOCOCCAL VACCINE POLYVALENT
     Indication: Prophylaxis
     Route: 065
  5. PREDNISONE [Interacting]
     Active Substance: PREDNISONE
     Indication: Product used for unknown indication
     Route: 064
  6. DOXORUBICIN [Interacting]
     Active Substance: DOXORUBICIN
     Indication: Product used for unknown indication
     Route: 064
  7. CYCLOPHOSPHAMIDE [Interacting]
     Active Substance: CYCLOPHOSPHAMIDE
     Indication: Product used for unknown indication
     Route: 064

REACTIONS (5)
  - Vaccination failure [Unknown]
  - Hypogammaglobulinaemia [Unknown]
  - Foetal exposure during pregnancy [Unknown]
  - Premature baby [Unknown]
  - Vaccine interaction [Unknown]
